FAERS Safety Report 7256840-7 (Version None)
Quarter: 2011Q1

REPORT INFORMATION
  Report Type: 
  Country: None (occurrence: None)
  Receive Date: 20110129
  Receipt Date: 20100715
  Transmission Date: 20110831
  Serious: No
  Sender: FDA-Public Use
  Company Number: US-ABBOTT-10P-163-0652179-00

PATIENT
  Sex: Female
  Weight: 69.916 kg

DRUGS (3)
  1. LEXAPRO [Concomitant]
     Indication: ARTHROPATHY
  2. PREDNISONE [Concomitant]
  3. HUMIRA [Suspect]
     Indication: RHEUMATOID ARTHRITIS
     Route: 058

REACTIONS (3)
  - INJECTION SITE HAEMATOMA [None]
  - DEVICE MALFUNCTION [None]
  - NEEDLE ISSUE [None]
